FAERS Safety Report 9247042 (Version 2)
Quarter: 2013Q2

REPORT INFORMATION
  Report Type: Spontaneous
  Country: AU (occurrence: AU)
  Receive Date: 20130423
  Receipt Date: 20130520
  Transmission Date: 20140414
  Serious: Yes (Hospitalization, Other)
  Sender: FDA-Public Use
  Company Number: AU-AMGEN-AUSSP2013026077

PATIENT
  Age: 79 Year
  Sex: Female
  Weight: 48 kg

DRUGS (15)
  1. PROLIA [Suspect]
     Indication: PRODUCT USED FOR UNKNOWN INDICATION
     Dosage: UNK UNK, QD
     Route: 058
     Dates: start: 20120901, end: 20120901
  2. PREDNISOLONE [Concomitant]
  3. PREGABALIN [Concomitant]
  4. ESOMEPRAZOLE [Concomitant]
  5. PANCREATIC ENZYMES [Concomitant]
  6. LOPERAMIDE [Concomitant]
  7. ASPIRIN [Concomitant]
  8. CALCIUM CITRATE [Concomitant]
  9. METOPROLOL [Concomitant]
  10. PARACETAMOL [Concomitant]
  11. CODEINE [Concomitant]
  12. XALATAN [Concomitant]
  13. LUCENTIS [Concomitant]
  14. IRON [Concomitant]
  15. VITAMIN B12                        /00056201/ [Concomitant]

REACTIONS (9)
  - Hypocalcaemia [Not Recovered/Not Resolved]
  - Asthenia [Not Recovered/Not Resolved]
  - Localised infection [Unknown]
  - Sepsis [Unknown]
  - Hypokalaemia [Unknown]
  - Inflammatory bowel disease [Not Recovered/Not Resolved]
  - Blood magnesium decreased [Unknown]
  - Malnutrition [Unknown]
  - Hypoalbuminaemia [Unknown]
